FAERS Safety Report 7459692-5 (Version None)
Quarter: 2011Q2

REPORT INFORMATION
  Report Type: 
  Country: None (occurrence: None)
  Receive Date: 20110505
  Receipt Date: 20110422
  Transmission Date: 20111010
  Serious: No
  Sender: FDA-Public Use
  Company Number: US-ELI_LILLY_AND_COMPANY-US201008007010

PATIENT
  Sex: Female

DRUGS (16)
  1. FORTEO [Suspect]
     Dosage: 20 UG, DAILY (1/D)
     Route: 065
  2. FORTEO [Suspect]
     Dosage: 20 UG, DAILY (1/D)
     Route: 065
  3. FORTEO [Suspect]
     Dosage: 20 UG, QD
     Route: 065
  4. LOVASTATIN [Concomitant]
     Dosage: 10 MG, UNK
  5. DICLOFENAC [Concomitant]
     Dosage: 75 MG, 2/D
  6. CARDIZEM [Concomitant]
     Dosage: 240 MG, DAILY (1/D)
  7. ASPIRIN [Concomitant]
     Dosage: 81 MG, EACH MORNING
  8. LOVASTATIN [Concomitant]
     Dosage: 40 MG, EACH EVENING
  9. TRAVATAN [Concomitant]
     Indication: GLAUCOMA
     Dosage: 0.004 %, EACH EVENING
  10. DIURETICS [Concomitant]
     Dosage: 10 MG, UNK
  11. TIMOPTIC [Concomitant]
     Dosage: 0.5 %, EACH EVENING
  12. BYSTOLIC [Concomitant]
     Dosage: 10 MG, EACH MORNING
  13. HYDROCHLOROTHIAZIDE [Concomitant]
     Dosage: 25 MG, EACH MORNING
  14. FORTEO [Suspect]
     Indication: OSTEOPOROSIS
     Dosage: 20 UG, DAILY (1/D)
     Route: 065
  15. TRAVATAN [Concomitant]
     Dosage: 0.04 %, UNK
  16. ALISKIREN [Concomitant]

REACTIONS (13)
  - BURNING SENSATION [None]
  - WEIGHT INCREASED [None]
  - EYE IRRITATION [None]
  - PAIN [None]
  - INJECTION SITE HAEMORRHAGE [None]
  - VISUAL IMPAIRMENT [None]
  - DISCOMFORT [None]
  - WALKING AID USER [None]
  - MUSCULOSKELETAL DISCOMFORT [None]
  - GROIN PAIN [None]
  - FATIGUE [None]
  - INCREASED APPETITE [None]
  - MUSCULOSKELETAL STIFFNESS [None]
